FAERS Safety Report 7955446-1 (Version None)
Quarter: 2011Q4

REPORT INFORMATION
  Report Type: 
  Country: None (occurrence: None)
  Receive Date: 20111202
  Receipt Date: 20111128
  Transmission Date: 20120403
  Serious: Yes (Hospitalization)
  Sender: FDA-Public Use
  Company Number: JP-ABBOTT-11P-087-0878129-00

PATIENT
  Sex: Female
  Weight: 47.5 kg

DRUGS (7)
  1. HUMIRA [Suspect]
     Dates: start: 20110106, end: 20110106
  2. FERROUS SULFATE HYDRATE [Concomitant]
     Indication: ANAEMIA
     Route: 048
     Dates: end: 20110105
  3. NIZATIDINE [Concomitant]
     Indication: PRODUCT USED FOR UNKNOWN INDICATION
     Route: 048
  4. HUMIRA [Suspect]
     Dates: start: 20110120, end: 20110414
  5. HUMIRA [Suspect]
     Indication: CROHN'S DISEASE
     Route: 058
     Dates: start: 20101222, end: 20101222
  6. HERBAL MEDICINE (DAIKENCHUTO) [Concomitant]
     Indication: CROHN'S DISEASE
     Route: 048
     Dates: start: 20110120, end: 20110428
  7. MESALAMINE [Concomitant]
     Indication: CROHN'S DISEASE
     Route: 048

REACTIONS (2)
  - ABDOMINAL DISTENSION [None]
  - INTESTINAL OBSTRUCTION [None]
